FAERS Safety Report 8432436-6 (Version None)
Quarter: 2012Q2

REPORT INFORMATION
  Report Type: 
  Country: None (occurrence: None)
  Receive Date: 20120613
  Receipt Date: 20120608
  Transmission Date: 20120825
  Serious: Yes (Death)
  Sender: FDA-Public Use
  Company Number: US-ELI_LILLY_AND_COMPANY-US201206002961

PATIENT
  Age: 54 Year
  Sex: Male
  Weight: 165.53 kg

DRUGS (4)
  1. ADCIRCA [Suspect]
     Dosage: UNK, UNKNOWN
     Route: 065
  2. LETAIRIS [Concomitant]
     Dosage: UNK, UNKNOWN
     Route: 065
  3. DIURETICS [Concomitant]
     Dosage: UNK, UNKNOWN
     Route: 065
  4. TYVASO [Concomitant]
     Dosage: UNK, OTHER
     Route: 065
     Dates: start: 20120607

REACTIONS (1)
  - DEATH [None]
